FAERS Safety Report 5946716-7 (Version None)
Quarter: 2008Q4

REPORT INFORMATION
  Report Type: 
  Country: None (occurrence: None)
  Receive Date: 20081110
  Receipt Date: 20081008
  Transmission Date: 20090506
  Serious: No
  Sender: FDA-Public Use
  Company Number: A0750941A

PATIENT

DRUGS (1)
  1. ALTABAX [Suspect]

REACTIONS (1)
  - BURNING SENSATION [None]
